FAERS Safety Report 6793973-3 (Version None)
Quarter: 2010Q2

REPORT INFORMATION
  Report Type: 
  Country: None (occurrence: None)
  Receive Date: 20100624
  Receipt Date: 20060323
  Transmission Date: 20101027
  Serious: No
  Sender: FDA-Public Use
  Company Number: US-PFIZER INC-23100318

PATIENT
  Sex: Female

DRUGS (11)
  1. ARGATROBAN [Suspect]
     Dosage: FREQUENCY:  Q1HR
     Route: 042
     Dates: start: 20060322, end: 20060322
  2. ARGATROBAN [Suspect]
     Route: 042
     Dates: start: 20060324, end: 20060324
  3. ARGATROBAN [Suspect]
     Route: 042
     Dates: start: 20060324, end: 20060403
  4. ANALAPRILAT [Concomitant]
     Dosage: FREQUENCY:  QID
     Route: 042
  5. LASIX [Concomitant]
     Dosage: FREQUENCY:  BID
     Route: 042
  6. LEVOTHYROXINE [Concomitant]
     Dosage: FREQUENCY:  QD
     Route: 042
  7. ERTAPENEM [Concomitant]
     Dosage: FREQUENCY:  QD
  8. FENTANYL [Concomitant]
     Route: 042
  9. PENTOPRAZOL [Concomitant]
     Dosage: FREUQNECY:  QD
     Route: 042
  10. D5NS [Concomitant]
     Dosage: FREQUENCY:  Q1HR
     Route: 042
  11. POTASSIUM CHLORIDE [Concomitant]
     Route: 042

REACTIONS (3)
  - ACCIDENTAL OVERDOSE [None]
  - ACTIVATED PARTIAL THROMBOPLASTIN TIME PROLONGED [None]
  - PROTHROMBIN TIME PROLONGED [None]
